FAERS Safety Report 7919263-0 (Version None)
Quarter: 2011Q4

REPORT INFORMATION
  Report Type: 
  Country: None (occurrence: None)
  Receive Date: 20111116
  Receipt Date: 20111116
  Transmission Date: 20120403
  Serious: No
  Sender: FDA-Public Use
  Company Number: None

PATIENT
  Sex: Male

DRUGS (4)
  1. VENLAFAXINE [Suspect]
     Indication: MAJOR DEPRESSION
     Dosage: 75 MG BID ORAL
     Route: 048
     Dates: start: 20111018
  2. VENLAFAXINE [Suspect]
     Indication: ANXIETY
     Dosage: 75 MG BID ORAL
     Route: 048
     Dates: start: 20111018
  3. VENLAFAXINE [Suspect]
     Indication: MAJOR DEPRESSION
     Dosage: 37.5 MG BID ORAL
     Route: 048
     Dates: start: 20111018
  4. VENLAFAXINE [Suspect]
     Indication: ANXIETY
     Dosage: 37.5 MG BID ORAL
     Route: 048
     Dates: start: 20111018

REACTIONS (3)
  - PRODUCT SUBSTITUTION ISSUE [None]
  - HEADACHE [None]
  - ABDOMINAL DISCOMFORT [None]
